FAERS Safety Report 11794490 (Version 1)
Quarter: 2015Q4

REPORT INFORMATION
  Report Type: Spontaneous
  Country: US (occurrence: US)
  Receive Date: 20151202
  Receipt Date: 20151202
  Transmission Date: 20160305
  Serious: Yes (Hospitalization, Other)
  Sender: FDA-Public Use
  Company Number: US-ROXANE LABORATORIES, INC.-2015-RO-02004RO

PATIENT
  Age: 31 Year
  Sex: Female

DRUGS (1)
  1. OXYMORPHONE HYDROCHLORIDE. [Suspect]
     Active Substance: OXYMORPHONE HYDROCHLORIDE
     Indication: PRODUCT USED FOR UNKNOWN INDICATION
     Route: 065

REACTIONS (6)
  - Skin necrosis [Unknown]
  - Intentional product misuse [Unknown]
  - Thrombotic microangiopathy [Recovered/Resolved with Sequelae]
  - Acute kidney injury [Unknown]
  - Shock [Unknown]
  - Respiratory distress [Unknown]
